FAERS Safety Report 10854260 (Version 1)
Quarter: 2015Q1

REPORT INFORMATION
  Report Type: Spontaneous
  Country: SE (occurrence: None)
  Receive Date: 20150218
  Receipt Date: 20150218
  Transmission Date: 20150721
  Serious: Yes (Disabling)
  Sender: FDA-Public Use
  Company Number: 20150237

PATIENT
  Age: 69 Year
  Sex: Female

DRUGS (5)
  1. CALCICHEW-D3 (CHOLECALCIFEROL CONCENTRATE (POWDER FORM)) [Concomitant]
  2. FOLACIN (CALCIUM PHOSPHATE, FOLIC ACID) [Concomitant]
  3. METOJECT PEN (METHOTREXATE DISODIUM) [Suspect]
     Active Substance: METHOTREXATE SODIUM
     Indication: CROHN^S DISEASE
     Dosage: 1.25 MILLIGRAM IN 1 WEEK
     Route: 058
     Dates: start: 20140425, end: 20140919
  4. METOJECT PEN (METHOTREXATE DISODIUM) [Suspect]
     Active Substance: METHOTREXATE SODIUM
     Indication: PRODUCT USE ISSUE
     Dosage: 1.25 MILLIGRAM IN 1 WEEK
     Route: 058
     Dates: start: 20140425, end: 20140919
  5. ENALAPRIL [Concomitant]
     Active Substance: ENALAPRIL

REACTIONS (2)
  - Anaemia macrocytic [None]
  - Renal failure [None]

NARRATIVE: CASE EVENT DATE: 20140523
